FAERS Safety Report 4417501-2 (Version None)
Quarter: 2004Q2

REPORT INFORMATION
  Report Type: 
  Country: None (occurrence: None)
  Receive Date: 20040625
  Receipt Date: 20040420
  Transmission Date: 20050107
  Serious: No
  Sender: FDA-Public Use
  Company Number: 205996

PATIENT
  Sex: Female

DRUGS (1)
  1. AVASTIN [Suspect]
     Dosage: INTRAVENOUS
     Route: 042

REACTIONS (2)
  - BLOOD PRESSURE INCREASED [None]
  - VOMITING [None]
